FAERS Safety Report 6416950-0 (Version None)
Quarter: 2009Q4

REPORT INFORMATION
  Report Type: 
  Country: None (occurrence: None)
  Receive Date: 20091027
  Receipt Date: 20090520
  Transmission Date: 20100525
  Serious: No
  Sender: FDA-Public Use
  Company Number: US-ALLERGAN-0907100US

PATIENT
  Age: 88 Year
  Sex: Female

DRUGS (1)
  1. ALPHAGAN P [Suspect]
     Indication: GLAUCOMA
     Dosage: 1 GTT, UNKNOWN
     Route: 047
     Dates: start: 20090520, end: 20090520

REACTIONS (1)
  - EYE PAIN [None]
